FAERS Safety Report 12701662 (Version 1)
Quarter: 2016Q3

REPORT INFORMATION
  Report Type: Spontaneous
  Country: US (occurrence: None)
  Receive Date: 20160830
  Receipt Date: 20160830
  Transmission Date: 20161109
  Serious: Yes (Disabling)
  Sender: FDA-Public Use
  Company Number: None

PATIENT
  Age: 68 Year
  Sex: Male
  Weight: 69.4 kg

DRUGS (1)
  1. METHYLNALTREXONE BROMIDE [Suspect]
     Active Substance: METHYLNALTREXONE BROMIDE
     Indication: CONSTIPATION
     Dosage: 12 MG Q48HR SUBCUTANEOUS
     Route: 058
     Dates: start: 20141207, end: 20141209

REACTIONS (5)
  - Sepsis [None]
  - Large intestine perforation [None]
  - Wound [None]
  - Anal cancer [None]
  - Abdominal wall disorder [None]

NARRATIVE: CASE EVENT DATE: 20141209
